FAERS Safety Report 17986410 (Version 2)
Quarter: 2020Q3

REPORT INFORMATION
  Report Type: Spontaneous
  Country: US (occurrence: US)
  Receive Date: 20200706
  Receipt Date: 20200727
  Transmission Date: 20201103
  Serious: No
  Sender: FDA-Public Use
  Company Number: NVSC2020US190042

PATIENT
  Sex: Female

DRUGS (1)
  1. KISQALI [Suspect]
     Active Substance: RIBOCICLIB
     Indication: CARCINOEMBRYONIC ANTIGEN
     Dosage: 600 MG, TAKE 3 TABLET BY MOUTH DAILY ON DAY 1 TO 21, FOLLOWED BY 7 DAYS REST. REPEAT EVERY 28 DAYS.
     Route: 048
     Dates: start: 202006

REACTIONS (5)
  - Chest pain [Recovered/Resolved]
  - Decreased immune responsiveness [Not Recovered/Not Resolved]
  - Product use in unapproved indication [Unknown]
  - Dyspnoea [Recovered/Resolved]
  - Product dose omission issue [Unknown]
